FAERS Safety Report 9161170 (Version 1)
Quarter: 2013Q1

REPORT INFORMATION
  Report Type: Spontaneous
  Country: IL (occurrence: IL)
  Receive Date: 20130313
  Receipt Date: 20130313
  Transmission Date: 20140127
  Serious: Yes (Other)
  Sender: FDA-Public Use
  Company Number: CHPA2013IL004461

PATIENT
  Sex: Female

DRUGS (3)
  1. OTRIVIN [Suspect]
     Indication: NASAL CONGESTION
     Dosage: 1 DF, ONCE/SINGLE
     Route: 045
     Dates: start: 20130119, end: 20130119
  2. OTRIVIN [Suspect]
     Indication: RHINORRHOEA
  3. THIAZIDES [Concomitant]
     Indication: BLOOD PRESSURE
     Dosage: UNK, UNK

REACTIONS (2)
  - Anosmia [Not Recovered/Not Resolved]
  - Ageusia [Unknown]
